FAERS Safety Report 6249512-9 (Version None)
Quarter: 2009Q2

REPORT INFORMATION
  Report Type: 
  Country: None (occurrence: None)
  Receive Date: 20090629
  Receipt Date: 20090619
  Transmission Date: 20091009
  Serious: Yes (Life-Threatening, Hospitalization)
  Sender: FDA-Public Use
  Company Number: B0579799B

PATIENT
  Sex: Male
  Weight: 1.4 kg

DRUGS (4)
  1. DEROXAT [Suspect]
     Dosage: 20MG PER DAY
     Dates: start: 20081119, end: 20090525
  2. RISPERDAL [Suspect]
     Dosage: 4MG PER DAY
     Dates: start: 20081001, end: 20090525
  3. TRANXENE [Suspect]
     Dosage: 20MG PER DAY
     Dates: start: 20081119, end: 20090525
  4. LEPTICUR [Concomitant]

REACTIONS (4)
  - DRUG EXPOSURE DURING PREGNANCY [None]
  - FOETAL GROWTH RETARDATION [None]
  - PREMATURE BABY [None]
  - RESPIRATORY DISTRESS [None]
